FAERS Safety Report 6126329-7 (Version None)
Quarter: 2009Q1

REPORT INFORMATION
  Report Type: 
  Country: None (occurrence: None)
  Receive Date: 20090320
  Receipt Date: 20090311
  Transmission Date: 20090719
  Serious: Yes (Other)
  Sender: FDA-Public Use
  Company Number: GB-ELI_LILLY_AND_COMPANY-GB200903002983

PATIENT
  Sex: Female

DRUGS (2)
  1. FLUOXETINE [Suspect]
  2. ETHANOL [Concomitant]

REACTIONS (2)
  - ALCOHOL INTERACTION [None]
  - SOMNOLENCE [None]
